FAERS Safety Report 9336914 (Version 1)
Quarter: 2013Q2

REPORT INFORMATION
  Report Type: Spontaneous
  Country: US (occurrence: US)
  Receive Date: 20130607
  Receipt Date: 20130607
  Transmission Date: 20140414
  Serious: Yes (Other)
  Sender: FDA-Public Use
  Company Number: US-PFIZER INC-2013172570

PATIENT
  Age: 53 Year
  Sex: Female
  Weight: 74.83 kg

DRUGS (6)
  1. ADVIL PM [Suspect]
     Indication: INSOMNIA
     Dosage: UNK, ALTERNATE DAY
     Dates: start: 2012
  2. ADVIL PM [Interacting]
     Indication: PAIN
  3. IBUPROFEN [Interacting]
     Indication: PAIN
     Dosage: UNK, AS NEEDED
  4. OXYCODONE HYDROCHLORIDE [Interacting]
     Indication: PAIN
     Dosage: UNK
  5. MELATONIN [Interacting]
     Indication: INSOMNIA
     Dosage: UNK
  6. ZZZQUIL [Interacting]
     Indication: INSOMNIA
     Dosage: UNK

REACTIONS (7)
  - Arthropathy [Unknown]
  - Uterine disorder [Unknown]
  - Diarrhoea [Unknown]
  - Drug interaction [Unknown]
  - Muscle spasms [Unknown]
  - Erythema [Unknown]
  - Local swelling [Unknown]
